FAERS Safety Report 5055668-6 (Version None)
Quarter: 2006Q3

REPORT INFORMATION
  Report Type: 
  Country: None (occurrence: None)
  Receive Date: 20060714
  Receipt Date: 20060710
  Transmission Date: 20061208
  Serious: Yes (Hospitalization, Other)
  Sender: FDA-Public Use
  Company Number: HQWYE415822MAY06

PATIENT
  Age: 42 Year
  Sex: Female
  Weight: 60 kg

DRUGS (9)
  1. TYGACIL [Suspect]
     Indication: ABSCESS NECK
     Dosage: 100 MG LOADING, INTRAVENOUS
     Route: 042
     Dates: start: 20060512, end: 20060512
  2. TYGACIL [Suspect]
     Indication: CELLULITIS
     Dosage: 100 MG LOADING, INTRAVENOUS
     Route: 042
     Dates: start: 20060512, end: 20060512
  3. CLINDAMYCIN [Concomitant]
  4. FLAGYL [Concomitant]
  5. INSULIN [Concomitant]
  6. ELAVIL [Concomitant]
  7. PROTONIX [Concomitant]
  8. DECADRON [Concomitant]
  9. LOVENOX [Concomitant]

REACTIONS (4)
  - ANAPHYLACTIC REACTION [None]
  - ANGIONEUROTIC OEDEMA [None]
  - APNOEA [None]
  - DYSPHAGIA [None]
